FAERS Safety Report 6215977-1 (Version None)
Quarter: 2009Q2

REPORT INFORMATION
  Report Type: 
  Country: None (occurrence: None)
  Receive Date: 20090605
  Receipt Date: 20090527
  Transmission Date: 20091009
  Serious: Yes (Other)
  Sender: FDA-Public Use
  Company Number: TR-JNJFOC-20090600019

PATIENT
  Age: 43 Year
  Sex: Female

DRUGS (6)
  1. PALIPERIDONE [Suspect]
     Route: 048
  2. PALIPERIDONE [Suspect]
     Route: 048
  3. PALIPERIDONE [Suspect]
     Indication: SCHIZOPHRENIA
     Route: 048
  4. RISPERDAL CONSTA [Suspect]
     Indication: SCHIZOPHRENIA
     Route: 030
  5. HALOPERIDOL [Concomitant]
     Route: 051
  6. BIPERIDEN HYDROCHLORIDE TAB [Concomitant]

REACTIONS (5)
  - AKATHISIA [None]
  - ANXIETY [None]
  - CONFUSIONAL STATE [None]
  - DYSKINESIA [None]
  - SUICIDAL IDEATION [None]
